FAERS Safety Report 6617907-7 (Version None)
Quarter: 2010Q1

REPORT INFORMATION
  Report Type: 
  Country: None (occurrence: None)
  Receive Date: 20100308
  Receipt Date: 20100226
  Transmission Date: 20100710
  Serious: Yes (Other)
  Sender: FDA-Public Use
  Company Number: US-SANOFI-AVENTIS-2010SA011481

PATIENT
  Sex: Male

DRUGS (3)
  1. LOVENOX [Suspect]
     Indication: ANKLE OPERATION
     Route: 051
     Dates: start: 20100219, end: 20100225
  2. OXYCODONE HCL [Concomitant]
  3. DILAUDID [Concomitant]

REACTIONS (6)
  - ANXIETY [None]
  - DIARRHOEA [None]
  - FEELING ABNORMAL [None]
  - HEART RATE INCREASED [None]
  - HYPERHIDROSIS [None]
  - NERVOUSNESS [None]
